FAERS Safety Report 19814105 (Version 2)
Quarter: 2021Q4

REPORT INFORMATION
  Report Type: Spontaneous
  Country: US (occurrence: US)
  Receive Date: 20210910
  Receipt Date: 20211112
  Transmission Date: 20220303
  Serious: Yes (Hospitalization, Other)
  Sender: FDA-Public Use
  Company Number: US-NOVARTISPH-NVSC2021US201859

PATIENT
  Age: 36 Year
  Sex: Male

DRUGS (1)
  1. ADAKVEO [Suspect]
     Active Substance: CRIZANLIZUMAB-TMCA
     Indication: Sickle cell disease
     Dosage: UNK (INTRAVENOUS- INTO BLOODSTREAM VIA VEIN)
     Route: 042

REACTIONS (5)
  - Infusion related reaction [Recovered/Resolved]
  - Pneumonia [Unknown]
  - Sickle cell anaemia with crisis [Unknown]
  - Pruritus [Recovered/Resolved]
  - Drug ineffective [Unknown]
